FAERS Safety Report 4520421-6 (Version None)
Quarter: 2004Q4

REPORT INFORMATION
  Report Type: 
  Country: None (occurrence: None)
  Receive Date: 20041203
  Receipt Date: 20041124
  Transmission Date: 20050328
  Serious: Yes (Other)
  Sender: FDA-Public Use
  Company Number: 2004098710

PATIENT
  Sex: Female

DRUGS (3)
  1. FOSPHENYTOIN SODIUM [Suspect]
     Indication: STATUS EPILEPTICUS
     Dosage: INTRAVENOUS
     Route: 042
  2. DIAZEPAM [Concomitant]
  3. CEFUROXIME [Concomitant]

REACTIONS (1)
  - RESPIRATORY ARREST [None]
